FAERS Safety Report 8480089 (Version 2)
Quarter: 2013Q2

REPORT INFORMATION
  Report Type: Report from Study
  Country: JP (occurrence: JP)
  Receive Date: 20120328
  Receipt Date: 20130503
  Transmission Date: 20140414
  Serious: Yes (Hospitalization)
  Sender: FDA-Public Use
  Company Number: JP-PFIZER INC-2012074062

PATIENT
  Age: 62 Year
  Sex: Male
  Weight: 72 kg

DRUGS (3)
  1. TEMSIROLIMUS [Suspect]
     Indication: METASTATIC RENAL CELL CARCINOMA
     Dosage: 25 MG, UNK
     Route: 042
     Dates: start: 20110816, end: 20110825
  2. TEMSIROLIMUS [Suspect]
     Dosage: 25 MG, UNK
     Dates: start: 20111018
  3. POLARAMINE [Concomitant]
     Indication: PROPHYLAXIS
     Dosage: 5 MG, UNK
     Route: 042

REACTIONS (2)
  - Pneumonia [Recovered/Resolved]
  - Gastrointestinal haemorrhage [Recovered/Resolved]
